FAERS Safety Report 5273643-3 (Version None)
Quarter: 2007Q1

REPORT INFORMATION
  Report Type: 
  Country: None (occurrence: None)
  Receive Date: 20070321
  Receipt Date: 20070321
  Transmission Date: 20070707
  Serious: Yes (Other)
  Sender: FDA-Public Use
  Company Number: None

PATIENT
  Sex: Male
  Weight: 68.0396 kg

DRUGS (2)
  1. RAPTIVA [Suspect]
     Indication: PSORIASIS
     Dosage: 0.8 ML EVERY WEEK SQ
     Route: 058
     Dates: start: 20070204, end: 20070319
  2. KEFLEX [Concomitant]

REACTIONS (2)
  - DRUG INEFFECTIVE [None]
  - TINEA INFECTION [None]
